FAERS Safety Report 6315478-6 (Version None)
Quarter: 2009Q3

REPORT INFORMATION
  Report Type: 
  Country: None (occurrence: None)
  Receive Date: 20090819
  Receipt Date: 20090807
  Transmission Date: 20100115
  Serious: Yes (Other)
  Sender: FDA-Public Use
  Company Number: US-PFIZER INC-2009248823

PATIENT
  Sex: Female
  Weight: 68.027 kg

DRUGS (1)
  1. CHANTIX [Suspect]
     Indication: SMOKING CESSATION THERAPY
     Dosage: 1 MG, 2X/DAY
     Route: 048
     Dates: start: 20090720, end: 20090728

REACTIONS (6)
  - BALANCE DISORDER [None]
  - EYE IRRITATION [None]
  - FEELING DRUNK [None]
  - GAIT DISTURBANCE [None]
  - MYDRIASIS [None]
  - VISUAL IMPAIRMENT [None]
